FAERS Safety Report 4784568-1 (Version None)
Quarter: 2005Q3

REPORT INFORMATION
  Report Type: 
  Country: None (occurrence: None)
  Receive Date: 20050928
  Receipt Date: 20050907
  Transmission Date: 20060218
  Serious: No
  Sender: FDA-Public Use
  Company Number: USA0506100559

PATIENT
  Age: 10 Year
  Sex: Female
  Weight: 26 kg

DRUGS (4)
  1. STRATTERA [Suspect]
     Dosage: 25 MG DAY
     Dates: start: 20030218, end: 20050615
  2. ANDERALL XR [Concomitant]
  3. WELLBUTRIN SR [Concomitant]
  4. CONCERTA [Concomitant]

REACTIONS (5)
  - ABDOMINAL PAIN UPPER [None]
  - ALANINE AMINOTRANSFERASE INCREASED [None]
  - ASPARTATE AMINOTRANSFERASE INCREASED [None]
  - NAUSEA [None]
  - PLATELET COUNT INCREASED [None]
